FAERS Safety Report 8244334 (Version 3)
Quarter: 2012Q4

REPORT INFORMATION
  Report Type: 
  Country: DE (occurrence: DE)
  Receive Date: 20111115
  Receipt Date: 20121008
  Transmission Date: 20130627
  Serious: Yes (Hospitalization)
  Sender: FDA-Public Use
  Company Number: DE-UCBSA-043203

PATIENT
  Age: 52 Year
  Sex: Female
  Weight: 98 kg

DRUGS (7)
  1. NEUPRO [Suspect]
     Indication: PARKINSON^S DISEASE
     Route: 062
  2. NEUPRO [Suspect]
     Indication: PARKINSON^S DISEASE
     Dosage: APPLY 4 MG LESS OD ROTIGOTINE
     Route: 062
  3. NEUPRO [Suspect]
     Indication: PARKINSON^S DISEASE
     Dosage: 2 MG+8 MG DAILY
     Route: 062
     Dates: start: 201105, end: 201110
  4. NEUPRO [Suspect]
     Indication: PARKINSON^S DISEASE
     Dosage: INCREASED OVER THE COURSE OF THREE YEARS
     Route: 062
  5. NEUPRO [Suspect]
     Indication: PARKINSON^S DISEASE
     Dosage: UNKNOWN DOSE
     Route: 062
     Dates: start: 2008
  6. AMANTADINE [Suspect]
     Dates: start: 2008, end: 201105
  7. AZILECT [Concomitant]
     Indication: PARKINSON^S DISEASE
     Dates: start: 2009

REACTIONS (11)
  - Parkinson^s disease [Unknown]
  - Malaise [Unknown]
  - Drug ineffective [Unknown]
  - Sleep disorder [None]
  - Back pain [None]
  - Mobility decreased [None]
  - Fatigue [None]
  - Paraesthesia [None]
  - Visual field defect [None]
  - Depressed mood [None]
  - Haemoglobin decreased [None]
